FAERS Safety Report 13826027 (Version 1)
Quarter: 2017Q3

REPORT INFORMATION
  Report Type: Spontaneous
  Country: US (occurrence: US)
  Receive Date: 20170802
  Receipt Date: 20170802
  Transmission Date: 20171127
  Serious: Yes (Hospitalization)
  Sender: FDA-Public Use
  Company Number: US-UCBSA-2017008464

PATIENT
  Age: 88 Year
  Sex: Female
  Weight: 72 kg

DRUGS (9)
  1. NEUPRO [Suspect]
     Active Substance: ROTIGOTINE
     Indication: PARKINSON^S DISEASE
     Dosage: 1 MG, X 1 WEEK
     Dates: start: 201701, end: 201701
  2. ALCOHOL. [Concomitant]
     Active Substance: ALCOHOL
  3. NEUPRO [Suspect]
     Active Substance: ROTIGOTINE
     Dosage: 4 MG, X 2 WEEKS
     Dates: start: 201702, end: 201702
  4. LASIX [Concomitant]
     Active Substance: FUROSEMIDE
     Indication: SWELLING
     Dosage: 20 MG, 2X/DAY (BID)
  5. LEVODOPA/CARBIDOPA [Concomitant]
     Active Substance: CARBIDOPA\LEVODOPA
     Indication: PRODUCT USED FOR UNKNOWN INDICATION
  6. NEUPRO [Suspect]
     Active Substance: ROTIGOTINE
     Dosage: 2 MG, X 1 WEEK
     Dates: start: 201701, end: 201702
  7. NEUPRO [Suspect]
     Active Substance: ROTIGOTINE
     Dosage: 2 MG, ONCE DAILY (QD)
     Dates: start: 201704
  8. NEUPRO [Suspect]
     Active Substance: ROTIGOTINE
     Dosage: 2 MG, ONCE DAILY (QD)
     Dates: start: 201702, end: 20170403
  9. NEUPRO [Suspect]
     Active Substance: ROTIGOTINE
     Dosage: 3 MG, ONCE DAILY (QD)
     Dates: start: 20170404, end: 201704

REACTIONS (5)
  - Application site pruritus [Recovered/Resolved]
  - Oedema peripheral [Not Recovered/Not Resolved]
  - Contusion [Unknown]
  - Fall [Unknown]
  - Chronic obstructive pulmonary disease [Unknown]

NARRATIVE: CASE EVENT DATE: 2017
